FAERS Safety Report 25342437 (Version 1)
Quarter: 2025Q2

REPORT INFORMATION
  Report Type: Spontaneous
  Country: CN (occurrence: CN)
  Receive Date: 20250521
  Receipt Date: 20250521
  Transmission Date: 20250717
  Serious: Yes (Hospitalization, Other)
  Sender: Norvium Bioscience
  Company Number: CN-Norvium Bioscience LLC-080170

PATIENT
  Sex: Male
  Weight: 3.26 kg

DRUGS (6)
  1. AMIODARONE HYDROCHLORIDE [Suspect]
     Active Substance: AMIODARONE HYDROCHLORIDE
     Indication: Foetal arrhythmia
     Route: 064
  2. DIGOXIN [Suspect]
     Active Substance: DIGOXIN
     Indication: Foetal arrhythmia
     Route: 064
  3. SOTALOL [Suspect]
     Active Substance: SOTALOL
     Indication: Foetal arrhythmia
     Route: 064
  4. DEXAMETHASONE [Concomitant]
     Active Substance: DEXAMETHASONE
     Indication: Maternal therapy to enhance foetal lung maturity
     Route: 064
  5. MAGNESIUM SULFATE [Concomitant]
     Active Substance: MAGNESIUM SULFATE
     Indication: Maternal therapy to enhance foetal lung maturity
     Route: 064
  6. DIGOXIN [Suspect]
     Active Substance: DIGOXIN
     Indication: Foetal arrhythmia
     Dosage: MAINTENANCE DOSAGE 0.25 MG
     Route: 064

REACTIONS (6)
  - Foetal tachyarrhythmia [Recovered/Resolved]
  - Drug ineffective [Unknown]
  - Tricuspid valve incompetence [Recovered/Resolved]
  - Cardiomegaly [Recovered/Resolved]
  - Foetal exposure during pregnancy [Unknown]
  - Premature baby [Unknown]
